FAERS Safety Report 4456768-1 (Version None)
Quarter: 2004Q3

REPORT INFORMATION
  Report Type: 
  Country: None (occurrence: None)
  Receive Date: 20040921
  Receipt Date: 20040607
  Transmission Date: 20050211
  Serious: Yes (Hospitalization)
  Sender: FDA-Public Use
  Company Number: None

PATIENT
  Age: 56 Year
  Sex: Male
  Weight: 100.6985 kg

DRUGS (2)
  1. LIDOCAINE [Suspect]
     Dates: start: 20040507, end: 20040512
  2. ZOLOFT [Concomitant]

REACTIONS (3)
  - MENTAL DISORDER [None]
  - PAINFUL ERECTION [None]
  - PENILE PAIN [None]
